FAERS Safety Report 17009768 (Version 1)
Quarter: 2019Q4

REPORT INFORMATION
  Report Type: Spontaneous
  Country: US (occurrence: US)
  Receive Date: 20191107
  Receipt Date: 20191107
  Transmission Date: 20200122
  Serious: No
  Sender: FDA-Public Use
  Company Number: None

PATIENT
  Age: 48 Year
  Sex: Female

DRUGS (2)
  1. ENBREL [Suspect]
     Active Substance: ETANERCEPT
     Dates: start: 20190201
  2. OTREXUP [Suspect]
     Active Substance: METHOTREXATE
     Dates: start: 20190201

REACTIONS (6)
  - Joint swelling [None]
  - Hypokinesia [None]
  - Injection site pain [None]
  - Influenza like illness [None]
  - Injection site bruising [None]
  - Pain [None]

NARRATIVE: CASE EVENT DATE: 20191104
